FAERS Safety Report 4713640-7 (Version None)
Quarter: 2005Q3

REPORT INFORMATION
  Report Type: 
  Country: None (occurrence: None)
  Receive Date: 20050712
  Receipt Date: 20050627
  Transmission Date: 20060218
  Serious: Yes (Death, Hospitalization)
  Sender: FDA-Public Use
  Company Number: 2005-0008456

PATIENT
  Sex: Female
  Weight: 39 kg

DRUGS (2)
  1. VIREAD [Suspect]
     Indication: HIV INFECTION
     Dosage: ORAL
     Route: 048
  2. DIDANOSINE [Concomitant]

REACTIONS (2)
  - LACTIC ACIDOSIS [None]
  - WEIGHT DECREASED [None]
